FAERS Safety Report 6550542-8 (Version None)
Quarter: 2010Q1

REPORT INFORMATION
  Report Type: 
  Country: None (occurrence: None)
  Receive Date: 20100125
  Receipt Date: 20100118
  Transmission Date: 20100710
  Serious: Yes (Hospitalization, Other)
  Sender: FDA-Public Use
  Company Number: Z0002250A

PATIENT
  Sex: Female
  Weight: 68.5 kg

DRUGS (7)
  1. PAZOPANIB [Suspect]
     Dosage: 800MG PER DAY
     Route: 048
     Dates: start: 20091027
  2. FRAXIPARIN [Concomitant]
     Indication: THROMBOSIS
     Dosage: 1ML PER DAY
     Route: 058
     Dates: start: 20090902, end: 20091111
  3. THYRONAJOD [Concomitant]
     Indication: HYPOTHYROIDISM
     Dosage: 25MCG PER DAY
     Route: 048
     Dates: end: 20091219
  4. FEMOSTON CONTI [Concomitant]
     Indication: HORMONE REPLACEMENT THERAPY
     Dosage: 1MG WEEKLY
     Route: 048
     Dates: end: 20091024
  5. PHOSPHORE [Concomitant]
     Indication: DRUG USE FOR UNKNOWN INDICATION
     Dosage: 1TBS ALTERNATE DAYS
     Route: 048
     Dates: start: 20090924, end: 20091107
  6. FRAXIPARIN [Concomitant]
     Dosage: 1ML PER DAY
     Route: 058
     Dates: start: 20091116, end: 20091230
  7. METAMIZOL [Concomitant]
     Route: 048
     Dates: start: 20091110, end: 20091110

REACTIONS (6)
  - ALANINE AMINOTRANSFERASE INCREASED [None]
  - ASPARTATE AMINOTRANSFERASE INCREASED [None]
  - BLOOD LACTATE DEHYDROGENASE INCREASED [None]
  - FATIGUE [None]
  - PYREXIA [None]
  - VOMITING [None]
